FAERS Safety Report 26102199 (Version 1)
Quarter: 2025Q4

REPORT INFORMATION
  Report Type: Report from Study
  Country: EG (occurrence: EG)
  Receive Date: 20251128
  Receipt Date: 20251128
  Transmission Date: 20260118
  Serious: Yes (Hospitalization, Other)
  Sender: ROCHE
  Company Number: EG-ROCHE-10000445130

PATIENT
  Age: 52 Year
  Sex: Female
  Weight: 76 kg

DRUGS (2)
  1. PHESGO [Suspect]
     Active Substance: HYALURONIDASE-ZZXF\PERTUZUMAB\TRASTUZUMAB
     Indication: Breast cancer metastatic
     Route: 058
  2. HALOPERIDOL [Concomitant]
     Active Substance: HALOPERIDOL
     Indication: Influenza
     Dosage: THE PATIENT WAS TAKING TWO TABLETS DAILY BEFORE BEDTIME.
     Route: 048

REACTIONS (3)
  - Influenza [Recovered/Resolved]
  - Drainage [Recovered/Resolved]
  - Arrhythmia [Recovered/Resolved]

NARRATIVE: CASE EVENT DATE: 20210101
